FAERS Safety Report 4997753-0 (Version None)
Quarter: 2006Q2

REPORT INFORMATION
  Report Type: 
  Country: None (occurrence: None)
  Receive Date: 20060505
  Receipt Date: 20060425
  Transmission Date: 20061013
  Serious: Yes (Hospitalization)
  Sender: FDA-Public Use
  Company Number: 200611760BCC

PATIENT
  Age: 48 Year
  Sex: Female
  Weight: 78.4723 kg

DRUGS (4)
  1. ALEVE [Suspect]
     Indication: ARTHRITIS
     Dosage: 220 MG, QD, ORAL
     Route: 048
     Dates: start: 20000101
  2. ADVAIR DISKUS 100/50 [Concomitant]
  3. ALBUTEROL SULFATE AUTOHALER [Concomitant]
  4. SEASONALE [Concomitant]

REACTIONS (1)
  - MYOCARDIAL INFARCTION [None]
